FAERS Safety Report 5995793-6 (Version None)
Quarter: 2008Q4

REPORT INFORMATION
  Report Type: 
  Country: None (occurrence: None)
  Receive Date: 20081212
  Receipt Date: 20081003
  Transmission Date: 20090506
  Serious: No
  Sender: FDA-Public Use
  Company Number: US-ABBOTT-08P-163-0479632-00

PATIENT
  Sex: Female
  Weight: 91.708 kg

DRUGS (7)
  1. HUMIRA [Suspect]
     Indication: RHEUMATOID ARTHRITIS
     Route: 058
     Dates: start: 20080822
  2. METHOTREXATE [Concomitant]
     Indication: RHEUMATOID ARTHRITIS
  3. METFORMIN HCL [Concomitant]
     Indication: POLYCYSTIC OVARIES
  4. BIRTH CONTROL [Concomitant]
     Indication: DRUG USE FOR UNKNOWN INDICATION
  5. CETIRIZINE HYDROCHLORIDE [Concomitant]
     Indication: SEASONAL ALLERGY
  6. LORTAB [Concomitant]
     Indication: PAIN
  7. LORTAB [Concomitant]
     Indication: RHEUMATOID ARTHRITIS

REACTIONS (1)
  - ACCIDENTAL EXPOSURE [None]
